FAERS Safety Report 11180980 (Version 4)
Quarter: 2016Q1

REPORT INFORMATION
  Report Type: Spontaneous
  Country: US (occurrence: US)
  Receive Date: 20150611
  Receipt Date: 20160125
  Transmission Date: 20160525
  Serious: Yes (Hospitalization)
  Sender: FDA-Public Use
  Company Number: US-009507513-1505USA010445

PATIENT
  Sex: Female
  Weight: 60.32 kg

DRUGS (4)
  1. BYSTOLIC [Concomitant]
     Active Substance: NEBIVOLOL HYDROCHLORIDE
     Dosage: UNK
  2. OXYCODONE [Concomitant]
     Active Substance: OXYCODONE
     Dosage: UNK
  3. INTRON A [Suspect]
     Active Substance: INTERFERON ALFA-2B
     Dosage: 18MU, 3 TIMES A WEEK
     Route: 058
     Dates: start: 2014
  4. VALCHLOR [Concomitant]
     Active Substance: MECHLORETHAMINE
     Dosage: UNK

REACTIONS (5)
  - Uterine prolapse [Unknown]
  - Drug dose omission [Unknown]
  - Cystocele [Unknown]
  - Rectocele [Unknown]
  - Emotional disorder [Not Recovered/Not Resolved]
